FAERS Safety Report 5378962-8 (Version None)
Quarter: 2007Q3

REPORT INFORMATION
  Report Type: 
  Country: None (occurrence: None)
  Receive Date: 20070705
  Receipt Date: 20070628
  Transmission Date: 20080115
  Serious: Yes (Other)
  Sender: FDA-Public Use
  Company Number: CH-ASTRAZENECA-2007PK01315

PATIENT
  Age: 61 Year
  Sex: Female
  Weight: 87 kg

DRUGS (6)
  1. SEROQUEL [Suspect]
     Indication: BIPOLAR DISORDER
     Route: 048
     Dates: start: 20070130, end: 20070504
  2. VALPROATE SODIUM [Suspect]
     Indication: BIPOLAR DISORDER
     Route: 048
     Dates: start: 20070130, end: 20070504
  3. HALDOL [Concomitant]
     Indication: BIPOLAR DISORDER
     Route: 048
     Dates: start: 20070416
  4. AKINETON [Concomitant]
     Route: 048
     Dates: start: 20070425
  5. CHLORAL HYDRATE [Concomitant]
     Indication: RESTLESSNESS
     Route: 048
     Dates: start: 20070207, end: 20070508
  6. CHLORAL HYDRATE [Concomitant]
     Indication: AGITATION
     Route: 048
     Dates: start: 20070207, end: 20070508

REACTIONS (3)
  - MUSCULOSKELETAL PAIN [None]
  - NEUTROPENIA [None]
  - THROMBOCYTOPENIA [None]
